FAERS Safety Report 24668189 (Version 2)
Quarter: 2024Q4

REPORT INFORMATION
  Report Type: Spontaneous
  Country: DE (occurrence: DE)
  Receive Date: 20241127
  Receipt Date: 20241209
  Transmission Date: 20250114
  Serious: Yes (Life-Threatening, Hospitalization, Other)
  Sender: AUROBINDO
  Company Number: DE-009507513-2410DEU012471

PATIENT
  Age: 75 Year
  Sex: Male
  Weight: 64 kg

DRUGS (5)
  1. CARBOPLATIN [Suspect]
     Active Substance: CARBOPLATIN
     Indication: Non-small cell lung cancer
     Dosage: 350 MILLIGRAM
     Route: 065
     Dates: start: 20240729, end: 2024
  2. CARBOPLATIN [Suspect]
     Active Substance: CARBOPLATIN
     Dosage: 300 MILLIGRAM
     Route: 065
     Dates: start: 20240909, end: 20240909
  3. PEMETREXED [Suspect]
     Active Substance: PEMETREXED
     Indication: Non-small cell lung cancer
     Dosage: 650 MILLIGRAM
     Route: 065
     Dates: start: 20240729, end: 2024
  4. PEMETREXED [Suspect]
     Active Substance: PEMETREXED
     Dosage: 600 MILLIGRAM
     Route: 065
     Dates: start: 20240909, end: 20240909
  5. PEMBROLIZUMAB [Suspect]
     Active Substance: PEMBROLIZUMAB
     Indication: Non-small cell lung cancer
     Dosage: 200 MILLIGRAM
     Route: 065
     Dates: start: 20240729, end: 20240909

REACTIONS (1)
  - Pneumonitis [Recovering/Resolving]

NARRATIVE: CASE EVENT DATE: 20240927
